FAERS Safety Report 8919520 (Version 1)
Quarter: 2012Q4

REPORT INFORMATION
  Report Type: 
  Country: US (occurrence: US)
  Receive Date: 20121121
  Receipt Date: 20121121
  Transmission Date: 20130627
  Serious: Yes (Other)
  Sender: FDA-Public Use
  Company Number: US-COVIDIEN/TYCO HEALTHCARE/MALLINCKRODT-T201203945

PATIENT
  Sex: Male

DRUGS (1)
  1. OPTIRAY [Suspect]
     Indication: ARTERIAL THERAPEUTIC PROCEDURE
     Dosage: Approximately 150 ml, single
     Route: 013

REACTIONS (1)
  - Nephropathy toxic [Unknown]
